FAERS Safety Report 5369461-8 (Version None)
Quarter: 2007Q2

REPORT INFORMATION
  Report Type: 
  Country: None (occurrence: None)
  Receive Date: 20070621
  Receipt Date: 20070611
  Transmission Date: 20071010
  Serious: Yes (Hospitalization)
  Sender: FDA-Public Use
  Company Number: 2007AL002354

PATIENT
  Age: 28 Year
  Sex: Female

DRUGS (5)
  1. METOCLOPRAMIDE [Suspect]
     Indication: NAUSEA
  2. ATVAQUONE/PROGUANIL [Concomitant]
  3. TRIMETHOPRIM [Concomitant]
  4. CIPROFLOXACIN [Concomitant]
  5. ORAL CONTRACEPTIVES [Concomitant]

REACTIONS (3)
  - DYSTONIA [None]
  - TACHYCARDIA [None]
  - TETANUS [None]
